FAERS Safety Report 6403559-8 (Version None)
Quarter: 2009Q4

REPORT INFORMATION
  Report Type: 
  Country: None (occurrence: None)
  Receive Date: 20091016
  Receipt Date: 20091005
  Transmission Date: 20100525
  Serious: Yes (Hospitalization)
  Sender: FDA-Public Use
  Company Number: JP-ASTRAZENECA-2009SE19811

PATIENT
  Age: 80 Year
  Sex: Male

DRUGS (11)
  1. PARAPRES [Suspect]
     Route: 048
     Dates: start: 20010101, end: 20090924
  2. PARAPRES [Interacting]
     Route: 048
     Dates: start: 20090924
  3. ACOVIL [Interacting]
     Route: 048
     Dates: start: 20010101, end: 20090924
  4. DIGOXIN [Interacting]
     Indication: CONGESTIVE CARDIOMYOPATHY
     Route: 048
     Dates: start: 20010101, end: 20090924
  5. SINTROM [Concomitant]
     Route: 048
  6. UROLOSIN [Concomitant]
     Route: 048
  7. ROCALTROL [Concomitant]
     Route: 048
  8. PANTOPRAZOLE SODIUM [Concomitant]
     Route: 048
  9. ZYLORIC [Concomitant]
     Route: 048
  10. LIPOCIDEN [Concomitant]
     Route: 048
  11. SEGURIL [Concomitant]
     Route: 048

REACTIONS (2)
  - BRADYCARDIA [None]
  - HYPERKALAEMIA [None]
